FAERS Safety Report 8969294 (Version 3)
Quarter: 2013Q2

REPORT INFORMATION
  Report Type: Spontaneous
  Country: US (occurrence: US)
  Receive Date: 20121217
  Receipt Date: 20130507
  Transmission Date: 20140414
  Serious: Yes (Hospitalization, Other)
  Sender: FDA-Public Use
  Company Number: US-BAYER-2012-131684

PATIENT
  Age: 18 Year
  Sex: Female
  Weight: 65.76 kg

DRUGS (22)
  1. YAZ [Suspect]
  2. YASMIN [Suspect]
     Dosage: UNK
     Dates: start: 2003, end: 200701
  3. DEPO-PROVERA [Concomitant]
  4. PROTONIX [Concomitant]
     Dosage: 40 MG, UNK
     Dates: start: 20060825
  5. PROTONIX [Concomitant]
     Dosage: UNK
     Dates: start: 20070117
  6. GAMMAGARD S/D [IMMUNOGLOBULIN HUMAN NORMAL] [Concomitant]
     Indication: IMMUNODEFICIENCY
     Dosage: UNK
     Dates: start: 2004, end: 201210
  7. IMITREX [Concomitant]
     Indication: HEADACHE
     Dosage: 50 MG, TAKE AT ONSET OF HEADACHE, REPEAT EVERY 2 HOURS [TIMES] 3.
     Dates: start: 20060913
  8. ADVAIR DISKUS [Concomitant]
     Dosage: INHALE ONE PUFF TWICE DAILY
     Dates: start: 20061023
  9. ADVAIR DISKUS [Concomitant]
     Dosage: UNK
     Dates: start: 20070117
  10. PREDNISONE [Concomitant]
     Dosage: 10 MG, THREE TABLETS BY MOUTH TWICE DAILY FOR FIVE DAYS
     Dates: start: 20061023
  11. METHYLPREDNISOLONE [METHYLPREDNISOLONE ACETATE] [Concomitant]
     Dosage: 4.0 MG, UNK
     Dates: start: 20061023
  12. ATARAX [Concomitant]
     Dosage: UNK
     Dates: start: 20061024
  13. MEDROL [Concomitant]
     Dosage: 32 MG, TAKE ONE TABLET BY MOUTH TWICE DAILY FOR 5 DAYS
     Dates: start: 20061219
  14. AMITRIPTYLINE [Concomitant]
     Dosage: 25 MG, TAKE ONE TABLET BY MOUTH AT BEDTIME FOR 7 DAYS
     Dates: start: 20070110
  15. AZITHROMYCIN [Concomitant]
     Dosage: 250 MG, TAKE TWO TABLETS BY MOUTH ON DAY 1, THEN ONE TABLET ON DAYS 2-5 DAYS
     Dates: start: 20070117
  16. ACETAMINOPHEN [Concomitant]
     Dosage: UNK
     Dates: start: 20070126
  17. IMMUNOGLOBULIN [Concomitant]
     Dosage: EVERY 3-4 WEEKS
     Route: 042
  18. ELAVIL [Concomitant]
  19. ANCEF [Concomitant]
  20. CELEBREX [Concomitant]
  21. EMLA [Concomitant]
  22. CLARITIN [Concomitant]

REACTIONS (9)
  - Pulmonary embolism [None]
  - Pulmonary embolism [None]
  - Endocarditis [None]
  - Atrial thrombosis [None]
  - Pulmonary infarction [None]
  - Pain [None]
  - Injury [None]
  - Pain [None]
  - Fear [None]
